FAERS Safety Report 6856130-8 (Version None)
Quarter: 2010Q3

REPORT INFORMATION
  Report Type: 
  Country: None (occurrence: None)
  Receive Date: 20100719
  Receipt Date: 20100706
  Transmission Date: 20110219
  Serious: Yes (Other)
  Sender: FDA-Public Use
  Company Number: PHHY2010MX43844

PATIENT
  Sex: Female

DRUGS (5)
  1. ACLASTA [Suspect]
     Indication: OSTEOPOROSIS
     Dosage: 5 MG PER YEAR
     Dates: start: 20090215
  2. ACLASTA [Suspect]
     Dosage: 5 MG PER YEAR
     Dates: start: 20100201
  3. MICARDIS HCT [Concomitant]
  4. CALCIUM [Concomitant]
  5. MICARDIS [Concomitant]

REACTIONS (12)
  - BONE PAIN [None]
  - CHILLS [None]
  - DEHYDRATION [None]
  - DIZZINESS [None]
  - GLOMERULAR FILTRATION RATE ABNORMAL [None]
  - LETHARGY [None]
  - NAUSEA [None]
  - OEDEMA PERIPHERAL [None]
  - PAIN [None]
  - PYREXIA [None]
  - RENAL CYST [None]
  - VOMITING [None]
